FAERS Safety Report 12172531 (Version 2)
Quarter: 2016Q2

REPORT INFORMATION
  Report Type: Spontaneous
  Country: US (occurrence: US)
  Receive Date: 20160311
  Receipt Date: 20160405
  Transmission Date: 20160815
  Serious: Yes (Other)
  Sender: FDA-Public Use
  Company Number: US-ASTELLAS-2016US008969

PATIENT
  Age: 55 Year
  Sex: Male

DRUGS (1)
  1. LEXISCAN [Suspect]
     Active Substance: REGADENOSON
     Indication: SCAN MYOCARDIAL PERFUSION
     Dosage: UNK UNK, TOTAL DOSE
     Route: 065
     Dates: start: 20160304, end: 20160304

REACTIONS (7)
  - Pulse absent [Recovered/Resolved]
  - Infarction [Recovered/Resolved]
  - Expired product administered [Unknown]
  - Atrioventricular block [Unknown]
  - Vomiting [Unknown]
  - Nausea [Recovered/Resolved]
  - Loss of consciousness [Recovered/Resolved]

NARRATIVE: CASE EVENT DATE: 20160304
